FAERS Safety Report 17606698 (Version 1)
Quarter: 2020Q1

REPORT INFORMATION
  Report Type: Report from Study
  Country: CA (occurrence: CA)
  Receive Date: 20200331
  Receipt Date: 20200331
  Transmission Date: 20200409
  Serious: Yes (Other)
  Sender: FDA-Public Use
  Company Number: CA-JNJFOC-20200335847

PATIENT
  Age: 56 Year
  Sex: Female
  Weight: 108.4 kg

DRUGS (1)
  1. STELARA [Suspect]
     Active Substance: USTEKINUMAB
     Indication: CROHN^S DISEASE
     Dosage: ON 23-MAR-2020, THE PATIENT RECEIVED 90 MILLIGRAM.
     Route: 058
     Dates: start: 20191008

REACTIONS (4)
  - Anal fissure [Unknown]
  - Haematochezia [Unknown]
  - Headache [Unknown]
  - Hypoaesthesia [Unknown]

NARRATIVE: CASE EVENT DATE: 20200119
